FAERS Safety Report 10710417 (Version 1)
Quarter: 2015Q1

REPORT INFORMATION
  Report Type: Spontaneous
  Country: US (occurrence: US)
  Receive Date: 20150114
  Receipt Date: 20150114
  Transmission Date: 20150721
  Serious: No
  Sender: FDA-Public Use
  Company Number: US-TEVA-534176USA

PATIENT
  Age: 49 Year
  Sex: Male

DRUGS (1)
  1. COPAXONE [Suspect]
     Active Substance: GLATIRAMER ACETATE
     Indication: MULTIPLE SCLEROSIS

REACTIONS (6)
  - Lip swelling [Recovered/Resolved]
  - Injection site haemorrhage [Recovered/Resolved]
  - Burning sensation [Recovered/Resolved]
  - Pruritus [Recovered/Resolved]
  - Immediate post-injection reaction [Recovered/Resolved]
  - Swollen tongue [Recovered/Resolved]

NARRATIVE: CASE EVENT DATE: 20150109
